FAERS Safety Report 8759219 (Version 1)
Quarter: 2012Q4

REPORT INFORMATION
  Report Type: 
  Country: FR (occurrence: FR)
  Receive Date: 20120829
  Receipt Date: 20120829
  Transmission Date: 20130627
  Serious: Yes (Hospitalization)
  Sender: FDA-Public Use
  Company Number: FR-ROCHE-1109636

PATIENT
  Age: 81 Year
  Sex: Female

DRUGS (3)
  1. ROCEPHINE [Suspect]
     Indication: URINARY TRACT INFECTION
     Dosage: 1g/10 ml
     Route: 030
     Dates: start: 20120528, end: 20120528
  2. EFFEXOR [Suspect]
     Indication: ANXIETY
     Dosage: 75 mg
     Route: 048
     Dates: start: 20120528, end: 20120531
  3. ATARAX [Suspect]
     Indication: SLEEP DISORDER
     Dosage: 25 mg
     Dates: start: 20120528

REACTIONS (1)
  - Urinary retention [Recovered/Resolved]
